FAERS Safety Report 20445426 (Version 1)
Quarter: 2022Q1

REPORT INFORMATION
  Report Type: Spontaneous
  Country: US (occurrence: None)
  Receive Date: 20220208
  Receipt Date: 20220208
  Transmission Date: 20220423
  Serious: Yes (Hospitalization)
  Sender: FDA-Public Use
  Company Number: None

PATIENT
  Sex: Male

DRUGS (2)
  1. NEUPOGEN [Suspect]
     Active Substance: FILGRASTIM
     Indication: Acute lymphocytic leukaemia
     Dosage: INJECT 1 SYRINGE UNDER THE SKIN EVERY EVENING AT 6 PM FOR 14 DAYS. START 24 HOURS AFTER EACH CHEMO C
     Route: 058
     Dates: start: 202201
  2. NEUPOGEN [Suspect]
     Active Substance: FILGRASTIM
     Indication: Anaemia

REACTIONS (1)
  - Chemotherapy [None]
